FAERS Safety Report 16568406 (Version 7)
Quarter: 2020Q1

REPORT INFORMATION
  Report Type: Report from Study
  Country: US (occurrence: US)
  Receive Date: 20190712
  Receipt Date: 20200323
  Transmission Date: 20200409
  Serious: Yes (Hospitalization, Other)
  Sender: FDA-Public Use
  Company Number: US-ACTELION-A-NJ2016-145415

PATIENT
  Age: 56 Year
  Sex: Female
  Weight: 60.77 kg

DRUGS (13)
  1. UPTRAVI [Suspect]
     Active Substance: SELEXIPAG
     Indication: PULMONARY ARTERIAL HYPERTENSION
     Dosage: 1000 MCG, BID
     Route: 048
  2. UPTRAVI [Suspect]
     Active Substance: SELEXIPAG
     Dosage: 600 MCG, QAM
     Route: 048
  3. UPTRAVI [Suspect]
     Active Substance: SELEXIPAG
     Dosage: 800 MCG, QPM
     Route: 048
  4. XARELTO [Concomitant]
     Active Substance: RIVAROXABAN
  5. OPSUMIT [Suspect]
     Active Substance: MACITENTAN
     Dosage: 10 MG, QD
     Route: 048
  6. BIAXIN [Suspect]
     Active Substance: CLARITHROMYCIN
     Indication: PRODUCT USED FOR UNKNOWN INDICATION
     Dosage: UNK
     Route: 065
     Dates: start: 20180126
  7. OPSUMIT [Suspect]
     Active Substance: MACITENTAN
     Indication: PULMONARY ARTERIAL HYPERTENSION
     Dosage: 10 MG, QD
     Route: 048
  8. LEVOTHYROXINE. [Concomitant]
     Active Substance: LEVOTHYROXINE
     Indication: THYROID DISORDER
  9. COREG [Concomitant]
     Active Substance: CARVEDILOL
  10. OPSUMIT [Suspect]
     Active Substance: MACITENTAN
     Dosage: 10 MG, QD
     Route: 048
     Dates: start: 20161024
  11. UPTRAVI [Suspect]
     Active Substance: SELEXIPAG
     Dosage: UNK
     Route: 048
  12. UPTRAVI [Suspect]
     Active Substance: SELEXIPAG
     Dosage: 400 MCG, BID
     Route: 048
  13. UPTRAVI [Suspect]
     Active Substance: SELEXIPAG
     Dosage: 800 MCG, BID
     Route: 048

REACTIONS (42)
  - Fluid retention [Unknown]
  - Wheezing [Unknown]
  - Flatulence [Unknown]
  - Weight decreased [Unknown]
  - Inflammation [Unknown]
  - Oxygen saturation decreased [Unknown]
  - Pulmonary congestion [Unknown]
  - Cough [Unknown]
  - Urinary tract infection [Unknown]
  - Dyspnoea exertional [Unknown]
  - Chest pain [Unknown]
  - Myalgia [Unknown]
  - Pain [Unknown]
  - Dizziness [Recovering/Resolving]
  - Pyrexia [Unknown]
  - Diarrhoea [Recovered/Resolved]
  - Back pain [Not Recovered/Not Resolved]
  - Starvation [Unknown]
  - Decreased appetite [Recovering/Resolving]
  - Sinus congestion [Unknown]
  - Ear congestion [Unknown]
  - Headache [Unknown]
  - Palpitations [Unknown]
  - Malaise [Unknown]
  - Heart rate increased [Unknown]
  - Muscle spasms [Recovering/Resolving]
  - Pain in extremity [Not Recovered/Not Resolved]
  - Abdominal pain upper [Unknown]
  - Thyroid disorder [Unknown]
  - Respiratory tract congestion [Unknown]
  - Dyspnoea [Unknown]
  - Pulmonary embolism [Unknown]
  - Gastrointestinal pain [Unknown]
  - Systemic lupus erythematosus [Unknown]
  - Hypotension [Unknown]
  - Nasopharyngitis [Unknown]
  - Sinusitis [Unknown]
  - Upper-airway cough syndrome [Unknown]
  - Chest discomfort [Unknown]
  - Tooth disorder [Unknown]
  - Nasal congestion [Unknown]
  - Nausea [Unknown]

NARRATIVE: CASE EVENT DATE: 20180111
